FAERS Safety Report 7499162-1 (Version None)
Quarter: 2011Q2

REPORT INFORMATION
  Report Type: 
  Country: None (occurrence: None)
  Receive Date: 20110516
  Receipt Date: 20110428
  Transmission Date: 20111010
  Serious: Yes (Hospitalization)
  Sender: FDA-Public Use
  Company Number: 031394

PATIENT
  Sex: Male
  Weight: 20.7 kg

DRUGS (10)
  1. LACOSAMIDE [Suspect]
     Indication: PARTIAL SEIZURES
     Dosage: (15 MG BID ORAL), (45 MG BID ORAL), (60 MG BID ORAL), (75 MG BID ORAL), (150 MG BID ORAL), (120 MG B
     Route: 048
     Dates: start: 20110314, end: 20110320
  2. LACOSAMIDE [Suspect]
     Indication: PARTIAL SEIZURES
     Dosage: (15 MG BID ORAL), (45 MG BID ORAL), (60 MG BID ORAL), (75 MG BID ORAL), (150 MG BID ORAL), (120 MG B
     Route: 048
     Dates: start: 20110329, end: 20110406
  3. LACOSAMIDE [Suspect]
     Indication: PARTIAL SEIZURES
     Dosage: (15 MG BID ORAL), (45 MG BID ORAL), (60 MG BID ORAL), (75 MG BID ORAL), (150 MG BID ORAL), (120 MG B
     Route: 048
     Dates: start: 20110211, end: 20110216
  4. LACOSAMIDE [Suspect]
     Indication: PARTIAL SEIZURES
     Dosage: (15 MG BID ORAL), (45 MG BID ORAL), (60 MG BID ORAL), (75 MG BID ORAL), (150 MG BID ORAL), (120 MG B
     Route: 048
     Dates: start: 20110321, end: 20110328
  5. LACOSAMIDE [Suspect]
     Indication: PARTIAL SEIZURES
     Dosage: (15 MG BID ORAL), (45 MG BID ORAL), (60 MG BID ORAL), (75 MG BID ORAL), (150 MG BID ORAL), (120 MG B
     Route: 048
     Dates: start: 20110407, end: 20110415
  6. LACOSAMIDE [Suspect]
     Indication: PARTIAL SEIZURES
     Dosage: (15 MG BID ORAL), (45 MG BID ORAL), (60 MG BID ORAL), (75 MG BID ORAL), (150 MG BID ORAL), (120 MG B
     Route: 048
     Dates: start: 20110419
  7. LACOSAMIDE [Suspect]
     Indication: PARTIAL SEIZURES
     Dosage: (15 MG BID ORAL), (45 MG BID ORAL), (60 MG BID ORAL), (75 MG BID ORAL), (150 MG BID ORAL), (120 MG B
     Route: 048
     Dates: start: 20110217, end: 20110313
  8. LAMOTRIGINE [Concomitant]
  9. KEPPRA [Concomitant]
  10. TOPAMAX [Concomitant]

REACTIONS (7)
  - WEIGHT DECREASED [None]
  - DYSPHAGIA [None]
  - STATUS ASTHMATICUS [None]
  - DEHYDRATION [None]
  - VIRAL UPPER RESPIRATORY TRACT INFECTION [None]
  - GASTROENTERITIS VIRAL [None]
  - RESPIRATORY DISTRESS [None]
